FAERS Safety Report 8589607-8 (Version None)
Quarter: 2012Q3

REPORT INFORMATION
  Report Type: 
  Country: None (occurrence: None)
  Receive Date: 20120813
  Receipt Date: 20120731
  Transmission Date: 20120928
  Serious: Yes (Hospitalization)
  Sender: FDA-Public Use
  Company Number: JP-ROCHE-1074482

PATIENT
  Sex: Female
  Weight: 100 kg

DRUGS (13)
  1. TAXOL [Suspect]
     Indication: BREAST CANCER METASTATIC
     Dosage: THREE ONE YASU
     Route: 041
     Dates: start: 20120501, end: 20120515
  2. DECADRON PHOSPHATE [Concomitant]
     Route: 048
     Dates: start: 20120509, end: 20120509
  3. PRIMPERAN (JAPAN) [Concomitant]
     Route: 048
     Dates: start: 20120509, end: 20120515
  4. DECADRON PHOSPHATE [Concomitant]
     Indication: PROPHYLAXIS OF NAUSEA AND VOMITING
     Route: 048
     Dates: start: 20120502, end: 20120502
  5. BROCIN [Concomitant]
     Indication: COUGH
     Dosage: DOSAGE IS UNCERTAIN,FORM:SYRUP
     Route: 048
     Dates: start: 20120501
  6. PRIMPERAN (JAPAN) [Concomitant]
     Indication: PROPHYLAXIS OF NAUSEA AND VOMITING
     Dosage: PERORAL
     Route: 048
     Dates: start: 20120502, end: 20120508
  7. VENA [Concomitant]
     Indication: PROPHYLAXIS
     Route: 048
     Dates: start: 20120501, end: 20120501
  8. VENA [Concomitant]
     Route: 048
     Dates: start: 20120515, end: 20120515
  9. AVASTIN [Suspect]
     Indication: BREAST CANCER METASTATIC
     Route: 041
     Dates: start: 20120501, end: 20120501
  10. LASIX [Concomitant]
     Indication: PLEURAL EFFUSION
     Dosage: PERORAL
     Route: 048
     Dates: end: 20120506
  11. VENA [Concomitant]
     Route: 048
     Dates: start: 20120508, end: 20120508
  12. DECADRON PHOSPHATE [Concomitant]
     Route: 048
     Dates: start: 20120516, end: 20120516
  13. HUMULIN N [Concomitant]
     Indication: DIABETES MELLITUS
     Dosage: DOSAGE IS UNCERTAIN.
     Route: 058

REACTIONS (2)
  - INTERSTITIAL LUNG DISEASE [None]
  - PNEUMOTHORAX [None]
